FAERS Safety Report 25585807 (Version 1)
Quarter: 2025Q3

REPORT INFORMATION
  Report Type: Spontaneous
  Country: US (occurrence: None)
  Receive Date: 20250719
  Receipt Date: 20250719
  Transmission Date: 20251021
  Serious: Yes (Hospitalization)
  Sender: FDA-CTU
  Company Number: None

PATIENT
  Sex: Female

DRUGS (11)
  1. PIRFENIDONE [Suspect]
     Active Substance: PIRFENIDONE
     Indication: Idiopathic pulmonary fibrosis
     Dosage: FREQUENCY : DAILY;?
     Route: 048
     Dates: start: 20250501
  2. ACETAMIN TAB 500MG [Concomitant]
  3. ASPIRIN [Concomitant]
     Active Substance: ASPIRIN
  4. BENZONATATE CAP 100MG [Concomitant]
  5. DOXYCYC MONO CAP 100MG [Concomitant]
  6. ESBRIET [Concomitant]
     Active Substance: PIRFENIDONE
  7. ESTRADIOL TAB1MG [Concomitant]
  8. LEVOTHYROXIN TAB 75MCG [Concomitant]
  9. LORAZEPAM TAB 0.SMG [Concomitant]
  10. LOSARTAN POT TAB 25MG [Concomitant]
  11. METOCLOPRAM TAB 10MG [Concomitant]

REACTIONS (2)
  - Hip fracture [None]
  - Fall [None]
